FAERS Safety Report 15540708 (Version 1)
Quarter: 2018Q4

REPORT INFORMATION
  Report Type: Spontaneous
  Country: US (occurrence: US)
  Receive Date: 20181016
  Receipt Date: 20181016
  Transmission Date: 20190205
  Serious: Yes (Hospitalization)
  Sender: FDA-Public Use
  Company Number: None

PATIENT
  Age: 52 Year
  Sex: Male

DRUGS (2)
  1. TADALAFIL 20MG [Suspect]
     Active Substance: TADALAFIL
     Indication: COUGH
     Route: 048
     Dates: start: 20151023
  2. TADALAFIL 20MG [Suspect]
     Active Substance: TADALAFIL
     Indication: BRONCHITIS
     Route: 048
     Dates: start: 20151023

REACTIONS (1)
  - Cardiac disorder [None]

NARRATIVE: CASE EVENT DATE: 20181002
